FAERS Safety Report 5400321-X (Version None)
Quarter: 2007Q3

REPORT INFORMATION
  Report Type: 
  Country: None (occurrence: None)
  Receive Date: 20070730
  Receipt Date: 20070719
  Transmission Date: 20080115
  Serious: Yes (Other)
  Sender: FDA-Public Use
  Company Number: FRWYE062520JUL07

PATIENT
  Age: 33 Year
  Sex: Female

DRUGS (4)
  1. EFFEXOR XR [Suspect]
     Indication: DEPRESSION
     Route: 048
     Dates: start: 20061101, end: 20070601
  2. EFFEXOR XR [Suspect]
     Route: 048
     Dates: start: 20070701
  3. LAROXYL [Concomitant]
     Dosage: UNKNOWN
     Dates: end: 20070601
  4. LYSANXIA [Concomitant]
     Dosage: UNKNOWN
     Route: 048
     Dates: end: 20070601

REACTIONS (7)
  - ANXIETY [None]
  - CONDITION AGGRAVATED [None]
  - DEPRESSION [None]
  - DRUG EXPOSURE DURING PREGNANCY [None]
  - DRUG WITHDRAWAL SYNDROME [None]
  - SLEEP DISORDER [None]
  - SUICIDAL IDEATION [None]
